FAERS Safety Report 9337605 (Version 3)
Quarter: 2013Q3

REPORT INFORMATION
  Report Type: Spontaneous
  Country: US (occurrence: US)
  Receive Date: 20130607
  Receipt Date: 20130717
  Transmission Date: 20140515
  Serious: No
  Sender: FDA-Public Use
  Company Number: US-ALLERGAN-1307887US

PATIENT
  Age: 86 Year
  Sex: Female
  Weight: 50.79 kg

DRUGS (1)
  1. REFRESH LACRI-LUBE [Suspect]
     Indication: EYE HAEMORRHAGE
     Dosage: UNK
     Dates: start: 20130521, end: 20130530

REACTIONS (3)
  - Visual acuity reduced [Recovered/Resolved]
  - Off label use [Unknown]
  - Ocular hyperaemia [Recovered/Resolved]
